FAERS Safety Report 8194096-1 (Version None)
Quarter: 2012Q1

REPORT INFORMATION
  Report Type: 
  Country: None (occurrence: None)
  Receive Date: 20120308
  Receipt Date: 20120301
  Transmission Date: 20120608
  Serious: Yes (Other)
  Sender: FDA-Public Use
  Company Number: GR-ROCHE-761357

PATIENT
  Age: 61 Year
  Sex: Male
  Weight: 60 kg

DRUGS (10)
  1. AVASTIN [Suspect]
     Indication: RECTAL NEOPLASM
     Dosage: 6 MONTHS
     Dates: start: 20110201
  2. AVASTIN [Suspect]
     Indication: METASTASES TO LIVER
     Dates: start: 20110828, end: 20111104
  3. VECTIBIX [Suspect]
     Indication: METASTASES TO LIVER
  4. XELODA [Suspect]
     Indication: COLORECTAL CANCER
     Dosage: DOSE : 5 X 500 MG, FREQ: 3 IN THE MORNING, 2 AT NIGHT FOR 14 DAYS FOLL BY 7 DAY DISCONTINUATION PD
     Route: 048
     Dates: start: 20110213, end: 20110817
  5. OXALIPLATIN [Suspect]
     Indication: METASTASES TO LIVER
     Dates: start: 20120229
  6. OXALIPLATIN [Suspect]
     Indication: RECTAL NEOPLASM
  7. XELODA [Suspect]
  8. IRINOTECAN HCL [Suspect]
     Indication: METASTASES TO LIVER
     Dosage: 6 MONTHS
     Dates: start: 20110828, end: 20111104
  9. IRINOTECAN HCL [Suspect]
     Indication: RECTAL NEOPLASM
     Dosage: AS REQUIRED, FOR 6 MONTHS
     Dates: start: 20110201
  10. VECTIBIX [Suspect]
     Indication: RECTAL NEOPLASM
     Dosage: AS REQUIRED
     Dates: start: 20120229

REACTIONS (10)
  - MYALGIA [None]
  - PYREXIA [None]
  - DERMATITIS [None]
  - THROMBOPHLEBITIS [None]
  - IRRITABLE BOWEL SYNDROME [None]
  - DRUG INEFFECTIVE [None]
  - OEDEMA PERIPHERAL [None]
  - DIARRHOEA [None]
  - DEEP VEIN THROMBOSIS [None]
  - GASTROINTESTINAL TRACT IRRITATION [None]
